FAERS Safety Report 8247350-9 (Version None)
Quarter: 2012Q1

REPORT INFORMATION
  Report Type: 
  Country: None (occurrence: None)
  Receive Date: 20120316
  Receipt Date: 20100308
  Transmission Date: 20120608
  Serious: Yes (Other)
  Sender: FDA-Public Use
  Company Number: PHHY2010US14001

PATIENT
  Age: 77 Year
  Sex: Female

DRUGS (3)
  1. TEKTURNA [Suspect]
     Indication: BLOOD PRESSURE ABNORMAL
     Dosage: UNK
     Dates: start: 20100101
  2. LANTUS [Suspect]
     Indication: TYPE 2 DIABETES MELLITUS
     Dosage: 8-20 UNITS (5-6 TIMES A WEEK) 100 IU/ML, SUBCUTANEOUS
     Route: 058
     Dates: start: 20091201
  3. LANTUS [Suspect]
     Indication: TYPE 2 DIABETES MELLITUS
     Dosage: 10 UNITS, SUBCUTANEOUS
     Route: 058
     Dates: start: 20090101

REACTIONS (6)
  - SWELLING FACE [None]
  - ABDOMINAL DISTENSION [None]
  - WEIGHT DECREASED [None]
  - LIP SWELLING [None]
  - BLOOD GLUCOSE DECREASED [None]
  - OEDEMA PERIPHERAL [None]
